FAERS Safety Report 8214251-1 (Version None)
Quarter: 2012Q1

REPORT INFORMATION
  Report Type: 
  Country: None (occurrence: None)
  Receive Date: 20120315
  Receipt Date: 20120315
  Transmission Date: 20120608
  Serious: Yes (Hospitalization)
  Sender: FDA-Public Use
  Company Number: None

PATIENT
  Sex: Female
  Weight: 17 kg

DRUGS (8)
  1. LOPERAMIDE [Concomitant]
  2. AMOXICILLIN [Concomitant]
  3. IRINOTECAN HCL [Suspect]
     Indication: NEUROBLASTOMA
     Dosage: 31.5 MG 5X EVERY 21 DAYS IVPB
     Route: 042
     Dates: start: 20111011
  4. ZOFRAN [Concomitant]
  5. MIRALAX [Concomitant]
  6. SUPRAX [Concomitant]
  7. VELCADE [Suspect]
     Indication: NEUROBLASTOMA
     Dosage: 0.84 MG 4X EVERY 21 DAYS IVP
     Route: 042
     Dates: start: 20111011
  8. ALBUTEROL [Concomitant]

REACTIONS (1)
  - PNEUMONIA [None]
